FAERS Safety Report 5421544-X (Version None)
Quarter: 2007Q3

REPORT INFORMATION
  Report Type: 
  Country: None (occurrence: None)
  Receive Date: 20070821
  Receipt Date: 20070809
  Transmission Date: 20080115
  Serious: Yes (Other)
  Sender: FDA-Public Use
  Company Number: GB-PFIZER INC-2007067291

PATIENT
  Age: 67 Year
  Sex: Male

DRUGS (3)
  1. METHYLPREDNISOLONE ACETATE [Suspect]
     Indication: T-CELL LYMPHOMA
  2. CISPLATIN [Suspect]
     Indication: T-CELL LYMPHOMA
  3. GEMCITABINE HCL [Suspect]
     Indication: T-CELL LYMPHOMA
     Dosage: TEXT:1 G/M2-FREQ:DAY 1-8-15 EVERY 28 DAYS

REACTIONS (2)
  - BLOOD BILIRUBIN INCREASED [None]
  - NEUTROPENIA [None]
